FAERS Safety Report 5381604-9 (Version None)
Quarter: 2007Q2

REPORT INFORMATION
  Report Type: 
  Country: None (occurrence: None)
  Receive Date: 20070629
  Receipt Date: 20061002
  Transmission Date: 20071010
  Serious: Yes (Hospitalization)
  Sender: FDA-Public Use
  Company Number: 2007019630

PATIENT
  Sex: Female

DRUGS (1)
  1. ZOLOFT [Suspect]
     Dates: start: 20000101, end: 20000101

REACTIONS (2)
  - HEART RATE INCREASED [None]
  - HYPERSENSITIVITY [None]
